FAERS Safety Report 4506422-2 (Version None)
Quarter: 2004Q4

REPORT INFORMATION
  Report Type: 
  Country: None (occurrence: None)
  Receive Date: 20041025
  Receipt Date: 20040802
  Transmission Date: 20050328
  Serious: Yes (Disabling)
  Sender: FDA-Public Use
  Company Number: US-JNJFOC-20040801667

PATIENT
  Age: 68 Year
  Sex: Female
  Weight: 81.6475 kg

DRUGS (8)
  1. REMICADE [Suspect]
     Indication: RHEUMATOID ARTHRITIS
     Dosage: INTRAVENOUS
     Route: 042
     Dates: start: 20030101
  2. REMICADE [Suspect]
     Indication: RHEUMATOID ARTHRITIS
     Dosage: INTRAVENOUS
     Route: 042
     Dates: start: 20040101
  3. REMICADE [Suspect]
     Indication: RHEUMATOID ARTHRITIS
     Dosage: INTRAVENOUS
     Route: 042
     Dates: start: 20040318
  4. METHOTREXATE [Concomitant]
  5. CELEBREX [Concomitant]
  6. PREMARIN [Concomitant]
  7. FOLIC ACID [Concomitant]
  8. NEURONTIN [Concomitant]

REACTIONS (5)
  - INFUSION RELATED REACTION [None]
  - KIDNEY INFECTION [None]
  - NEUROPATHY PERIPHERAL [None]
  - PRURITUS [None]
  - RASH [None]
